FAERS Safety Report 8268340-6 (Version None)
Quarter: 2012Q1

REPORT INFORMATION
  Report Type: 
  Country: None (occurrence: None)
  Receive Date: 20120327
  Receipt Date: 20090929
  Transmission Date: 20120608
  Serious: Yes (Other)
  Sender: FDA-Public Use
  Company Number: PHEH2009US10684

PATIENT
  Age: 32 Year
  Sex: Female

DRUGS (11)
  1. ALLOPURINOL [Suspect]
     Indication: TUMOUR LYSIS SYNDROME
     Dosage: 300 MG, DAILY, ORAL
     Route: 048
     Dates: start: 20090527, end: 20090805
  2. SPIRONOLACTONE [Concomitant]
  3. LEXAPRO [Concomitant]
  4. ACETAMINOPHEN [Concomitant]
  5. IBUPROFEN (ADVIL) [Concomitant]
  6. GLEEVEC [Suspect]
     Indication: CHRONIC MYELOID LEUKAEMIA
     Dosage: 400 MG, DAILY, ORAL
     Route: 048
     Dates: start: 20090622, end: 20090826
  7. AMLODIPINE BESYLATE W/BENAZEPRIL (AMLODIPINE BESILATE, BENAZEPRIL) [Concomitant]
  8. BUSPIRONE HCL [Concomitant]
  9. LORAZEPAM [Concomitant]
  10. METOLAZONE [Concomitant]
  11. LASIX [Concomitant]

REACTIONS (1)
  - EXFOLIATIVE RASH [None]
